FAERS Safety Report 7106952-3 (Version None)
Quarter: 2010Q4

REPORT INFORMATION
  Report Type: 
  Country: None (occurrence: None)
  Receive Date: 20101116
  Receipt Date: 20100830
  Transmission Date: 20110411
  Serious: No
  Sender: FDA-Public Use
  Company Number: US-ABBOTT-10P-163-0668516-00

PATIENT
  Sex: Male
  Weight: 78.088 kg

DRUGS (8)
  1. SIMCOR [Suspect]
     Indication: BLOOD CHOLESTEROL INCREASED
     Dosage: 500/20 MG AT NIGHT, ONLY TOOK 3 DOSES
     Dates: start: 20100601, end: 20100601
  2. METFORMIN [Concomitant]
     Indication: DIABETES MELLITUS
  3. GLIMEPIRIDE [Concomitant]
     Indication: DIABETES MELLITUS
  4. LISINOPRIL [Concomitant]
     Indication: HYPERTENSION
     Dosage: 20/25 MG
  5. ASPIRIN [Concomitant]
     Indication: ANTICOAGULANT THERAPY
  6. ROPINIROLE [Concomitant]
     Indication: RESTLESS LEGS SYNDROME
  7. TAMSULOSIN [Concomitant]
     Indication: PROSTATOMEGALY
  8. OMEPRAZOLE [Concomitant]
     Indication: GASTROOESOPHAGEAL REFLUX DISEASE

REACTIONS (3)
  - DIZZINESS [None]
  - HEART RATE INCREASED [None]
  - NAUSEA [None]
